FAERS Safety Report 9565852 (Version 2)
Quarter: 2013Q3

REPORT INFORMATION
  Report Type: Spontaneous
  Country: US (occurrence: US)
  Receive Date: 20130930
  Receipt Date: 20130930
  Transmission Date: 20140515
  Serious: Yes (Hospitalization)
  Sender: FDA-Public Use
  Company Number: US-JNJFOC-20121009417

PATIENT
  Age: 71 Year
  Sex: Male
  Weight: 62.3 kg

DRUGS (9)
  1. RIVAROXABAN [Suspect]
     Indication: CEREBROVASCULAR ACCIDENT PROPHYLAXIS
     Route: 048
     Dates: start: 20120731
  2. RIVAROXABAN [Suspect]
     Indication: CEREBROVASCULAR ACCIDENT PROPHYLAXIS
     Route: 048
     Dates: start: 20120728, end: 20120730
  3. RIVAROXABAN [Suspect]
     Indication: ATRIAL FIBRILLATION
     Route: 048
     Dates: start: 20120731
  4. RIVAROXABAN [Suspect]
     Indication: ATRIAL FIBRILLATION
     Route: 048
     Dates: start: 20120728, end: 20120730
  5. WARFARIN [Suspect]
     Indication: ATRIAL FIBRILLATION
     Route: 048
     Dates: start: 20120726, end: 20120727
  6. AMIODARONE [Concomitant]
     Dosage: PO TITRATED
     Route: 048
     Dates: start: 20120728
  7. CARVEDILOL [Concomitant]
     Indication: CARDIOMYOPATHY
     Route: 048
     Dates: start: 20120728
  8. LISINOPRIL [Concomitant]
     Indication: CARDIOMYOPATHY
     Route: 048
     Dates: start: 20120728
  9. THIAMINE [Concomitant]
     Route: 065

REACTIONS (4)
  - Gastrointestinal haemorrhage [Recovered/Resolved]
  - Melaena [Recovered/Resolved]
  - International normalised ratio increased [Recovered/Resolved]
  - Inappropriate schedule of drug administration [Unknown]
